FAERS Safety Report 11483238 (Version 1)
Quarter: 2015Q3

REPORT INFORMATION
  Report Type: Spontaneous
  Country: US (occurrence: US)
  Receive Date: 20150903
  Receipt Date: 20150903
  Transmission Date: 20151125
  Serious: No
  Sender: FDA-Public Use
  Company Number: US-ELI_LILLY_AND_COMPANY-US201206002249

PATIENT
  Age: 48 Year
  Sex: Female

DRUGS (1)
  1. CYMBALTA [Suspect]
     Active Substance: DULOXETINE HYDROCHLORIDE
     Indication: DEPRESSION
     Dosage: 60MG, DAILY

REACTIONS (6)
  - Nausea [Unknown]
  - Drug withdrawal syndrome [Unknown]
  - Migraine [Unknown]
  - Cerebral disorder [Unknown]
  - Paraesthesia [Unknown]
  - Drug dose omission [Unknown]
